FAERS Safety Report 16074426 (Version 1)
Quarter: 2019Q1

REPORT INFORMATION
  Report Type: Spontaneous
  Country: US (occurrence: US)
  Receive Date: 20190314
  Receipt Date: 20190314
  Transmission Date: 20190418
  Serious: No
  Sender: FDA-Public Use
  Company Number: US-GUERBET-US-20180284

PATIENT
  Age: 27 Year
  Sex: Female
  Weight: 56.6 kg

DRUGS (1)
  1. DOTAREM [Suspect]
     Active Substance: GADOTERATE MEGLUMINE
     Indication: NUCLEAR MAGNETIC RESONANCE IMAGING
     Route: 042
     Dates: start: 20181102, end: 20181102

REACTIONS (6)
  - Dizziness [Recovering/Resolving]
  - Erythema [Recovered/Resolved]
  - Urticaria [Recovered/Resolved]
  - Throat tightness [Recovering/Resolving]
  - Headache [Recovering/Resolving]
  - Product use in unapproved indication [Recovering/Resolving]

NARRATIVE: CASE EVENT DATE: 20181102
